FAERS Safety Report 12564855 (Version 1)
Quarter: 2016Q3

REPORT INFORMATION
  Report Type: Spontaneous
  Country: US (occurrence: US)
  Receive Date: 20160718
  Receipt Date: 20160718
  Transmission Date: 20161109
  Serious: No
  Sender: FDA-Public Use
  Company Number: US-JAZZ-2016-US-001017

PATIENT
  Age: 15 Year
  Sex: Female

DRUGS (5)
  1. NUVIGIL [Concomitant]
     Active Substance: ARMODAFINIL
     Indication: NARCOLEPSY
     Dosage: UNK
     Dates: start: 20141117
  2. XYREM [Suspect]
     Active Substance: SODIUM OXYBATE
     Indication: NARCOLEPSY
     Dosage: 3 G, FIRST DOSE
     Route: 048
     Dates: start: 20160118, end: 201601
  3. XYREM [Suspect]
     Active Substance: SODIUM OXYBATE
     Indication: CATAPLEXY
     Dosage: 2.5 G, SECOND DOSE
     Route: 048
     Dates: start: 20160118, end: 201601
  4. XYREM [Suspect]
     Active Substance: SODIUM OXYBATE
     Dosage: 3 G FIRST DOSE
     Route: 048
     Dates: start: 201601
  5. XYREM [Suspect]
     Active Substance: SODIUM OXYBATE
     Dosage: 1.5 G SECOND DOSE
     Route: 048
     Dates: start: 201601

REACTIONS (4)
  - Nausea [Not Recovered/Not Resolved]
  - Dizziness [Unknown]
  - Decreased appetite [Not Recovered/Not Resolved]
  - Diarrhoea [Unknown]

NARRATIVE: CASE EVENT DATE: 201601
